FAERS Safety Report 10929896 (Version 1)
Quarter: 2015Q1

REPORT INFORMATION
  Report Type: Spontaneous
  Country: US (occurrence: None)
  Receive Date: 20150318
  Receipt Date: 20150318
  Transmission Date: 20150721
  Serious: Yes (Disabling)
  Sender: FDA-Public Use
  Company Number: None

PATIENT
  Age: 54 Year
  Sex: Female
  Weight: 63.05 kg

DRUGS (3)
  1. ANGSTROM MAGNESIUM [Concomitant]
  2. RELPAX [Concomitant]
     Active Substance: ELETRIPTAN HYDROBROMIDE
  3. CIPROFLAXIN [Suspect]
     Active Substance: CIPROFLOXACIN
     Indication: CYSTITIS
     Dosage: 1 PILL
     Route: 048
     Dates: start: 20081214, end: 20081216

REACTIONS (10)
  - Groin pain [None]
  - Skin burning sensation [None]
  - Insomnia [None]
  - Muscle disorder [None]
  - Pain [None]
  - Malaise [None]
  - Feeling abnormal [None]
  - Suicidal ideation [None]
  - Arthralgia [None]
  - Tendon injury [None]

NARRATIVE: CASE EVENT DATE: 20081214
